FAERS Safety Report 5738367-4 (Version None)
Quarter: 2008Q2

REPORT INFORMATION
  Report Type: 
  Country: None (occurrence: None)
  Receive Date: 20080513
  Receipt Date: 20080501
  Transmission Date: 20081010
  Serious: Yes (Hospitalization)
  Sender: FDA-Public Use
  Company Number: WAES 0803USA01139

PATIENT
  Age: 70 Year
  Sex: Female
  Weight: 53.5244 kg

DRUGS (10)
  1. DECADRON [Suspect]
     Dosage: 1 MG/DAILY/PO; 2 MG/DAILY/PO; 4 M/DAILY/PO
     Route: 048
     Dates: end: 20080201
  2. DECADRON [Suspect]
     Dosage: 1 MG/DAILY/PO; 2 MG/DAILY/PO; 4 M/DAILY/PO
     Route: 048
     Dates: start: 20080201
  3. TEMOZOLOMIDE [Suspect]
     Indication: GLIOBLASTOMA MULTIFORME
     Dosage: 155 MG/DAILY/PO
     Route: 048
     Dates: start: 20080107, end: 20080222
  4. LEVOTHYROXINE SODIUM [Suspect]
     Dosage: 150 MICROGM/DAILY
  5. PREMARIN [Suspect]
  6. ADVAIR DISKUS 100/50 [Concomitant]
  7. COLACE [Concomitant]
  8. NORVASC [Concomitant]
  9. SENOKOT [Concomitant]
  10. TOPROL-XL [Concomitant]

REACTIONS (12)
  - AFFECTIVE DISORDER [None]
  - ANXIETY [None]
  - BLOOD THYROID STIMULATING HORMONE DECREASED [None]
  - CEREBRAL HAEMORRHAGE [None]
  - DEEP VEIN THROMBOSIS [None]
  - DELUSION [None]
  - DEPRESSION [None]
  - FAILURE TO THRIVE [None]
  - HYPOXIA [None]
  - MENTAL STATUS CHANGES [None]
  - PYREXIA [None]
  - TRI-IODOTHYRONINE DECREASED [None]
